FAERS Safety Report 10276695 (Version 2)
Quarter: 2014Q3

REPORT INFORMATION
  Report Type: Spontaneous
  Country: JP (occurrence: None)
  Receive Date: 20140701
  Receipt Date: 20140728
  Transmission Date: 20150326
  Serious: Yes (Other)
  Sender: FDA-Public Use
  Company Number: 2014-19837

PATIENT
  Age: 86 Year
  Sex: Male
  Weight: 62 kg

DRUGS (5)
  1. TEPRENONE [Concomitant]
     Active Substance: TEPRENONE
  2. LEVOFLOXACIN [Concomitant]
     Active Substance: LEVOFLOXACIN
  3. AMLODIPINE [Concomitant]
     Active Substance: AMLODIPINE BESYLATE
  4. MICARDIS [Concomitant]
     Active Substance: TELMISARTAN
  5. EYLEA [Suspect]
     Active Substance: AFLIBERCEPT
     Indication: AGE-RELATED MACULAR DEGENERATION
     Route: 031
     Dates: start: 20140521, end: 20140521

REACTIONS (3)
  - Dizziness [None]
  - Vertigo [None]
  - Nuclear magnetic resonance imaging brain abnormal [None]

NARRATIVE: CASE EVENT DATE: 20140603
